FAERS Safety Report 23090749 (Version 1)
Quarter: 2023Q4

REPORT INFORMATION
  Report Type: Spontaneous
  Country: US (occurrence: US)
  Receive Date: 20231020
  Receipt Date: 20231020
  Transmission Date: 20240110
  Serious: No
  Sender: FDA-Public Use
  Company Number: US-PFIZER INC-PV202300172618

PATIENT
  Age: 73 Year
  Sex: Male

DRUGS (1)
  1. TIGECYCLINE [Suspect]
     Active Substance: TIGECYCLINE
     Dosage: UNK

REACTIONS (2)
  - Vomiting [Unknown]
  - Nausea [Unknown]
